FAERS Safety Report 6294473-X (Version None)
Quarter: 2009Q3

REPORT INFORMATION
  Report Type: 
  Country: None (occurrence: None)
  Receive Date: 20090803
  Receipt Date: 20090408
  Transmission Date: 20100115
  Serious: Yes (Other)
  Sender: FDA-Public Use
  Company Number: CN-BAYER-200926460GPV

PATIENT
  Age: 82 Year
  Sex: Male

DRUGS (1)
  1. NIMOTOP [Suspect]
     Indication: CEREBRAL INFARCTION
     Dosage: UNIT DOSE: 50 ML
     Route: 042
     Dates: start: 20080101, end: 20080101

REACTIONS (4)
  - BRADYCARDIA [None]
  - CHEST DISCOMFORT [None]
  - HYPOTENSION [None]
  - NERVOUSNESS [None]
